FAERS Safety Report 9896406 (Version 1)
Quarter: 2014Q1

REPORT INFORMATION
  Report Type: Spontaneous
  Country: US (occurrence: US)
  Receive Date: 20140213
  Receipt Date: 20140213
  Transmission Date: 20141002
  Serious: No
  Sender: FDA-Public Use
  Company Number: US-BRISTOL-MYERS SQUIBB COMPANY-19835859

PATIENT
  Age: 55 Year
  Sex: Male
  Weight: 74.83 kg

DRUGS (9)
  1. ORENCIA FOR INJ 250 MG/VIAL [Suspect]
     Indication: RHEUMATOID ARTHRITIS
     Dosage: 250MG
     Route: 042
  2. MULTIVITAMIN [Concomitant]
     Dosage: TABS
  3. METHOTREXATE TABS [Concomitant]
  4. LEFLUNOMIDE [Concomitant]
     Dosage: TABS
  5. PLAQUENIL [Concomitant]
     Dosage: TABS
  6. FOLIC ACID [Concomitant]
     Dosage: TABS
  7. PREDNISONE [Concomitant]
     Dosage: TABS
  8. VICODIN [Concomitant]
     Dosage: TABS
  9. VITAMIN D [Concomitant]
     Dosage: 1DF: 400 UNIT

REACTIONS (1)
  - Drug ineffective [Unknown]
